FAERS Safety Report 8824691 (Version 2)
Quarter: 2012Q4

REPORT INFORMATION
  Report Type: 
  Country: JP (occurrence: JP)
  Receive Date: 20121004
  Receipt Date: 20121102
  Transmission Date: 20130627
  Serious: Yes (Other)
  Sender: FDA-Public Use
  Company Number: JP-SANOFI-AVENTIS-2012SA072644

PATIENT
  Age: 64 Year
  Sex: Male

DRUGS (2)
  1. MYSLEE [Suspect]
     Indication: DRUG USE FOR UNKNOWN INDICATION
     Route: 048
  2. LOXONIN [Suspect]
     Indication: PAIN
     Route: 048

REACTIONS (3)
  - Delirium [Recovered/Resolved]
  - Drug interaction [Unknown]
  - Amnesia [Recovered/Resolved]
